FAERS Safety Report 17744808 (Version 3)
Quarter: 2020Q2

REPORT INFORMATION
  Report Type: Spontaneous
  Country: US (occurrence: US)
  Receive Date: 20200505
  Receipt Date: 20200618
  Transmission Date: 20200714
  Serious: No
  Sender: FDA-Public Use
  Company Number: US-PFIZER INC-2020177185

PATIENT
  Age: 10 Year
  Sex: Male
  Weight: 34.02 kg

DRUGS (4)
  1. ZARONTIN [Suspect]
     Active Substance: ETHOSUXIMIDE
     Dosage: 12.5 ML, TWICE DAILY
  2. ETHOSUXIMIDE. [Suspect]
     Active Substance: ETHOSUXIMIDE
     Indication: EPILEPSY
     Dosage: 18 ML, IN THE MORNING
     Dates: start: 2019
  3. ETHOSUXIMIDE. [Suspect]
     Active Substance: ETHOSUXIMIDE
     Dosage: 12.5 ML, TWICE DAILY
  4. ETHOSUXIMIDE. [Suspect]
     Active Substance: ETHOSUXIMIDE
     Dosage: 19 ML, IN THE EVENING
     Dates: start: 2019

REACTIONS (1)
  - Drug ineffective [Unknown]
